FAERS Safety Report 7307197-4 (Version None)
Quarter: 2011Q1

REPORT INFORMATION
  Report Type: 
  Country: None (occurrence: None)
  Receive Date: 20110223
  Receipt Date: 20110211
  Transmission Date: 20110831
  Serious: Yes (Hospitalization)
  Sender: FDA-Public Use
  Company Number: HU-JNJFOC-20110107187

PATIENT
  Sex: Female
  Weight: 81 kg

DRUGS (13)
  1. GOLIMUMAB [Suspect]
     Indication: RHEUMATOID ARTHRITIS
     Route: 058
  2. DIAPREL [Concomitant]
     Route: 048
  3. METHOTREXATE [Suspect]
     Indication: RHEUMATOID ARTHRITIS
     Route: 048
  4. METHOTREXAT [Concomitant]
     Route: 058
  5. METHYLPREDNISOLONE [Concomitant]
     Route: 048
  6. GOLIMUMAB [Suspect]
     Route: 058
  7. PERINDOPRIL [Concomitant]
     Route: 048
  8. VITAMIN D [Concomitant]
     Route: 048
  9. OMEPRAZOLE [Concomitant]
     Route: 048
  10. IBANDRONATE SODIUM [Concomitant]
     Route: 042
  11. CONCOR [Concomitant]
     Route: 048
  12. KALIUM-R [Concomitant]
     Route: 048
  13. FURON [Concomitant]
     Route: 048

REACTIONS (1)
  - RENAL CELL CARCINOMA [None]
